FAERS Safety Report 7216668-0 (Version None)
Quarter: 2011Q1

REPORT INFORMATION
  Report Type: 
  Country: None (occurrence: None)
  Receive Date: 20110110
  Receipt Date: 20101231
  Transmission Date: 20110831
  Serious: No
  Sender: FDA-Public Use
  Company Number: US-BIOGENIDEC-2011BI000397

PATIENT
  Age: 52 Year
  Sex: Female

DRUGS (5)
  1. XANAX [Concomitant]
     Indication: HYPERTENSION
     Route: 048
  2. HYDROCHLORATHIAZIDE 12.5MG [Concomitant]
     Indication: HYPERTENSION
     Route: 048
  3. TYSABRI [Suspect]
     Indication: MULTIPLE SCLEROSIS
     Route: 042
     Dates: start: 20100723
  4. BACLOFEN [Concomitant]
     Indication: MUSCLE SPASMS
     Route: 048
  5. HYDROCODONE /APAP - 10MG/325 MG [Concomitant]
     Indication: ARTHRALGIA
     Route: 048
     Dates: start: 19930101

REACTIONS (3)
  - URINARY INCONTINENCE [None]
  - MULTIPLE SCLEROSIS RELAPSE [None]
  - HYPERTENSION [None]
